FAERS Safety Report 11185297 (Version 1)
Quarter: 2015Q2

REPORT INFORMATION
  Report Type: Spontaneous
  Country: US (occurrence: US)
  Receive Date: 20150612
  Receipt Date: 20150612
  Transmission Date: 20150821
  Serious: No
  Sender: FDA-Public Use
  Company Number: US-DSJP-DSU-2014-117042

PATIENT
  Age: 61 Year
  Sex: Male

DRUGS (1)
  1. BENICAR [Suspect]
     Active Substance: OLMESARTAN MEDOXOMIL
     Indication: HYPERTENSION
     Dosage: 20 MG, QD
     Route: 048
     Dates: start: 2012, end: 20140730

REACTIONS (8)
  - Dizziness [Recovered/Resolved]
  - Headache [Recovered/Resolved]
  - Musculoskeletal pain [Recovered/Resolved]
  - Food craving [Recovered/Resolved]
  - Pain in extremity [Recovered/Resolved]
  - Arthralgia [Recovered/Resolved]
  - Asthenia [Recovered/Resolved]
  - Chest pain [Recovered/Resolved]

NARRATIVE: CASE EVENT DATE: 201407
